FAERS Safety Report 6775847-7 (Version None)
Quarter: 2010Q2

REPORT INFORMATION
  Report Type: 
  Country: None (occurrence: None)
  Receive Date: 20100615
  Receipt Date: 20100608
  Transmission Date: 20101027
  Serious: Yes (Other)
  Sender: FDA-Public Use
  Company Number: 1000011989

PATIENT
  Age: 72 Year
  Sex: Female

DRUGS (9)
  1. SAVELLA [Suspect]
     Indication: FIBROMYALGIA
     Dosage: 12.5 MG (12.5 MG, 1 IN 1 D), ORAL
     Route: 048
     Dates: start: 20100201, end: 20100201
  2. OPANA [Concomitant]
  3. SYNTHROID [Concomitant]
  4. CYTOMEL [Concomitant]
  5. FUROSEMIDE [Concomitant]
  6. HCT (TABLETS) [Concomitant]
  7. ALLOPURINOL [Concomitant]
  8. PERCOCET [Concomitant]
  9. SULINDAC [Concomitant]

REACTIONS (1)
  - SUICIDAL IDEATION [None]
